FAERS Safety Report 8422117-7 (Version None)
Quarter: 2012Q2

REPORT INFORMATION
  Report Type: 
  Country: None (occurrence: None)
  Receive Date: 20120608
  Receipt Date: 20120601
  Transmission Date: 20120825
  Serious: Yes (Hospitalization)
  Sender: FDA-Public Use
  Company Number: PHEH2012US011182

PATIENT
  Sex: Male

DRUGS (11)
  1. FOSAMAX PLUS D [Concomitant]
     Dosage: UNK UKN, UNK
  2. ZOLOFT [Concomitant]
     Dosage: UNK UKN, UNK
  3. FLOMAX [Concomitant]
     Dosage: UNK UKN, UNK
  4. AVODART [Concomitant]
     Dosage: UNK UKN, UNK
  5. ASPIRIN [Concomitant]
     Dosage: UNK UKN, UNK
  6. PLAVIX [Concomitant]
     Dosage: UNK UKN, UNK
  7. VITAMIN D [Concomitant]
     Dosage: UNK UKN, UNK
  8. GILENYA [Suspect]
     Indication: MULTIPLE SCLEROSIS
     Dosage: 0.5 MG, QD
     Route: 048
     Dates: start: 20110215
  9. ACIPHEX [Concomitant]
     Dosage: UNK UKN, UNK
  10. BACLOFEN [Concomitant]
     Dosage: UNK UKN, UNK
  11. LIPITOR [Concomitant]
     Dosage: UNK UKN, UNK

REACTIONS (4)
  - MYOCARDIAL INFARCTION [None]
  - DYSPNOEA [None]
  - CHEST PAIN [None]
  - CHEST DISCOMFORT [None]
